FAERS Safety Report 8824689 (Version 2)
Quarter: 2012Q4

REPORT INFORMATION
  Report Type: Report from Study
  Country: CZ (occurrence: CZ)
  Receive Date: 20121004
  Receipt Date: 20121011
  Transmission Date: 20130627
  Serious: Yes (Other)
  Sender: FDA-Public Use
  Company Number: CZ-ACTELION-A-CH2012-71784

PATIENT
  Age: 11 Year
  Sex: Male
  Weight: 28 kg

DRUGS (2)
  1. ZAVESCA [Suspect]
     Indication: NIEMANN-PICK DISEASE
     Dosage: 200 mg, bid
     Route: 048
     Dates: start: 20110908, end: 20120830
  2. ZAVESCA [Suspect]
     Dosage: 100 mg, bid
     Route: 048
     Dates: start: 20120922

REACTIONS (18)
  - Convulsion [Recovering/Resolving]
  - Niemann-Pick disease [Recovering/Resolving]
  - Disease progression [Recovering/Resolving]
  - Gait disturbance [Recovering/Resolving]
  - Motor dysfunction [Recovering/Resolving]
  - Mental status changes [Recovering/Resolving]
  - Dysphagia [Recovering/Resolving]
  - Speech disorder [Recovering/Resolving]
  - Vomiting [Recovering/Resolving]
  - Gastrointestinal disorder [Recovering/Resolving]
  - Drug intolerance [Unknown]
  - Refusal of treatment by patient [Unknown]
  - Salivary hypersecretion [Recovering/Resolving]
  - Enuresis [Recovered/Resolved]
  - Encopresis [Recovered/Resolved]
  - Aggression [Recovered/Resolved]
  - Ataxia [Recovered/Resolved]
  - Increased upper airway secretion [Recovered/Resolved]
